FAERS Safety Report 24356147 (Version 2)
Quarter: 2024Q4

REPORT INFORMATION
  Report Type: Spontaneous
  Country: TR (occurrence: TR)
  Receive Date: 20240924
  Receipt Date: 20241004
  Transmission Date: 20250114
  Serious: Yes (Hospitalization)
  Sender: TEVA
  Company Number: TR-TEVA-VS-3244810

PATIENT
  Age: 59 Year
  Sex: Female

DRUGS (1)
  1. METHOTREXATE [Suspect]
     Active Substance: METHOTREXATE
     Indication: Iridocyclitis
     Route: 065

REACTIONS (3)
  - Pancytopenia [Unknown]
  - Toxicity to various agents [Unknown]
  - Treatment failure [Unknown]
